FAERS Safety Report 14263362 (Version 1)
Quarter: 2017Q4

REPORT INFORMATION
  Report Type: Spontaneous
  Country: US (occurrence: US)
  Receive Date: 20171208
  Receipt Date: 20171208
  Transmission Date: 20180321
  Serious: Yes (Other)
  Sender: FDA-Public Use
  Company Number: US-PFIZER INC-2017525072

PATIENT
  Age: 90 Year
  Sex: Female
  Weight: 53.52 kg

DRUGS (4)
  1. ADVIL [Suspect]
     Active Substance: IBUPROFEN
     Indication: HYPERSENSITIVITY
     Dosage: 1 DF, UNK
     Route: 048
     Dates: start: 20171205, end: 20171205
  2. LEVOTHYROXINE. [Concomitant]
     Active Substance: LEVOTHYROXINE
     Indication: THYROIDECTOMY
     Dosage: 100 UG, 1X/DAY (100MCG ONCE DAILY IN THE MORNING)
  3. ADVIL [Suspect]
     Active Substance: IBUPROFEN
     Indication: UPPER RESPIRATORY TRACT CONGESTION
  4. NASOCORT [Concomitant]
     Active Substance: BUDESONIDE
     Dosage: ONE SPRAY IN EACH NOSTRIL

REACTIONS (4)
  - Choking [Recovered/Resolved]
  - Foreign body in respiratory tract [Recovered/Resolved]
  - Cough [Unknown]
  - Nausea [Unknown]

NARRATIVE: CASE EVENT DATE: 20171205
